FAERS Safety Report 8911930 (Version 1)
Quarter: 2012Q4

REPORT INFORMATION
  Report Type: 
  Country: US (occurrence: US)
  Receive Date: 20121115
  Receipt Date: 20121115
  Transmission Date: 20130627
  Serious: No
  Sender: FDA-Public Use
  Company Number: US-009507513-1210USA014088

PATIENT
  Sex: Male

DRUGS (1)
  1. CLARITIN [Suspect]
     Indication: HYPERSENSITIVITY
     Dosage: 10 mg, bid
     Dates: start: 20120904

REACTIONS (2)
  - Overdose [Recovering/Resolving]
  - Inappropriate schedule of drug administration [Recovering/Resolving]
